FAERS Safety Report 14790603 (Version 1)
Quarter: 2018Q2

REPORT INFORMATION
  Report Type: Spontaneous
  Country: US (occurrence: US)
  Receive Date: 20180423
  Receipt Date: 20180423
  Transmission Date: 20180711
  Serious: No
  Sender: FDA-Public Use
  Company Number: US-TEVA-2018-US-867571

PATIENT
  Sex: Female

DRUGS (3)
  1. HYDROMORPHONE [Suspect]
     Active Substance: HYDROMORPHONE
     Indication: ARTHRITIS
  2. HYDROMORPHONE [Suspect]
     Active Substance: HYDROMORPHONE
     Indication: SPINAL CORD INJURY
  3. HYDROMORPHONE [Suspect]
     Active Substance: HYDROMORPHONE
     Indication: BACK PAIN
     Route: 030

REACTIONS (5)
  - Withdrawal syndrome [Unknown]
  - Pruritus [Unknown]
  - Abdominal discomfort [Unknown]
  - Drug ineffective [Unknown]
  - Hyperaesthesia [Unknown]
